FAERS Safety Report 5480191-4 (Version None)
Quarter: 2007Q4

REPORT INFORMATION
  Report Type: 
  Country: None (occurrence: None)
  Receive Date: 20071003
  Receipt Date: 20070918
  Transmission Date: 20080405
  Serious: Yes (Other)
  Sender: FDA-Public Use
  Company Number: 2007RR-10152

PATIENT
  Sex: Male

DRUGS (2)
  1. ATENOLOL [Suspect]
     Indication: ANGINA PECTORIS
     Dosage: 25 MG, BID, ORAL
     Route: 048
     Dates: start: 19930101
  2. ATENOLOL [Suspect]
     Indication: HYPERTENSION
     Dosage: 25 MG, BID, ORAL
     Route: 048
     Dates: start: 19930101

REACTIONS (2)
  - BRADYCARDIA [None]
  - EXTRASYSTOLES [None]
